FAERS Safety Report 6522168-3 (Version None)
Quarter: 2009Q4

REPORT INFORMATION
  Report Type: 
  Country: None (occurrence: None)
  Receive Date: 20091214
  Receipt Date: 20091027
  Transmission Date: 20100525
  Serious: Yes (Hospitalization)
  Sender: FDA-Public Use
  Company Number: 593726

PATIENT
  Age: 60 Year
  Sex: Male
  Weight: 70.3 kg

DRUGS (2)
  1. PEGASYS [Suspect]
     Indication: HEPATITIS C VIRUS TEST
     Dosage: 180 UG 1 PER WEEK SUBCUTANEOUS
     Route: 058
     Dates: start: 20080630, end: 20081006
  2. RIBAVIRIN [Suspect]
     Indication: HEPATITIS C VIRUS TEST
     Dosage: 3 DOSE FORM 2 PER DAY ORAL
     Route: 048
     Dates: start: 20080630, end: 20081006

REACTIONS (2)
  - DEPRESSION [None]
  - HAEMOGLOBIN DECREASED [None]
